FAERS Safety Report 6704930-7 (Version None)
Quarter: 2010Q2

REPORT INFORMATION
  Report Type: 
  Country: None (occurrence: None)
  Receive Date: 20100430
  Receipt Date: 20100224
  Transmission Date: 20101027
  Serious: No
  Sender: FDA-Public Use
  Company Number: US-ASTRAZENECA-2010SE08539

PATIENT
  Sex: Female

DRUGS (1)
  1. NEXIUM [Suspect]

REACTIONS (1)
  - LIPOMA [None]
